FAERS Safety Report 7598129-2 (Version None)
Quarter: 2011Q3

REPORT INFORMATION
  Report Type: 
  Country: None (occurrence: None)
  Receive Date: 20110708
  Receipt Date: 20110630
  Transmission Date: 20111222
  Serious: Yes (Death, Hospitalization)
  Sender: FDA-Public Use
  Company Number: TR-CELGENEUS-161-C5013-11063994

PATIENT
  Sex: Female

DRUGS (7)
  1. REVLIMID [Suspect]
     Indication: MYELOFIBROSIS
     Dosage: 10 MILLIGRAM
     Route: 048
     Dates: end: 20110101
  2. IDAMYCIN [Concomitant]
     Route: 065
     Dates: start: 20101227
  3. CYTARABINE [Concomitant]
     Route: 065
     Dates: start: 20101227
  4. NORODOL [Concomitant]
     Indication: DELIRIUM
     Dosage: 20 DROPS
     Route: 065
  5. PLATELETS [Concomitant]
     Route: 065
  6. OXYGEN [Concomitant]
     Route: 065
  7. RED BLOOD CELLS [Concomitant]
     Route: 065

REACTIONS (1)
  - MYELOFIBROSIS [None]
